FAERS Safety Report 5810899-X (Version None)
Quarter: 2008Q3

REPORT INFORMATION
  Report Type: 
  Country: None (occurrence: None)
  Receive Date: 20080716
  Receipt Date: 20080703
  Transmission Date: 20090109
  Serious: Yes (Hospitalization)
  Sender: FDA-Public Use
  Company Number: PHEH2008US05972

PATIENT
  Sex: Female

DRUGS (1)
  1. RECLAST [Suspect]
     Indication: OSTEOPOROSIS
     Dosage: UNK
     Dates: start: 20080613

REACTIONS (6)
  - BONE PAIN [None]
  - FULL BLOOD COUNT DECREASED [None]
  - HYPERHIDROSIS [None]
  - MIGRAINE [None]
  - PAIN [None]
  - VIRAL INFECTION [None]
